FAERS Safety Report 9019570 (Version 2)
Quarter: 2013Q1

REPORT INFORMATION
  Report Type: Spontaneous
  Country: US (occurrence: US)
  Receive Date: 20130118
  Receipt Date: 20130213
  Transmission Date: 20140127
  Serious: Yes (Other)
  Sender: FDA-Public Use
  Company Number: US-PFIZER INC-2013018803

PATIENT
  Age: 26 Year
  Sex: Male
  Weight: 113 kg

DRUGS (1)
  1. ADVIL [Suspect]
     Indication: PHARYNGEAL DISORDER
     Dosage: THREE CAPSULES OF 200 MG, AS NEEDED

REACTIONS (4)
  - Poor quality drug administered [Unknown]
  - Tonsillar disorder [Unknown]
  - Product odour abnormal [Unknown]
  - Capsule physical issue [Unknown]
